FAERS Safety Report 9074458 (Version 1)
Quarter: 2013Q1

REPORT INFORMATION
  Report Type: Report from Study
  Country: US (occurrence: US)
  Receive Date: 20130129
  Receipt Date: 20130129
  Transmission Date: 20140127
  Serious: No
  Sender: FDA-Public Use
  Company Number: US-ABBOTT-12P-163-0931133-00

PATIENT
  Age: 49 Year
  Sex: Female

DRUGS (10)
  1. HUMIRA 40 MG/0.8 ML PEN [Suspect]
     Indication: RHEUMATOID ARTHRITIS
     Dates: start: 20111205
  2. OMEPRAZOLE [Concomitant]
     Indication: PROPHYLAXIS AGAINST GASTROINTESTINAL ULCER
  3. MELATONIN [Concomitant]
     Indication: INSOMNIA
     Dosage: 1 TAB AT NIGHT
  4. KLONOPIN [Concomitant]
     Indication: DEPRESSION
     Dosage: 0.5MG TWICE DAILY AS NEEDED
  5. KLONOPIN [Concomitant]
     Indication: ANXIETY
  6. ADDERALL [Concomitant]
     Indication: FATIGUE
  7. PREDNISONE [Concomitant]
     Indication: RHEUMATOID ARTHRITIS
  8. LISINOPRIL [Concomitant]
     Indication: HYPERTENSION
  9. ULTRAM [Concomitant]
     Indication: ARTHRALGIA
  10. IBUPROFEN [Concomitant]
     Indication: ARTHRALGIA
     Dosage: 800MG 3 TIMES DAILY AS NEEDED

REACTIONS (5)
  - Allergy to arthropod sting [Not Recovered/Not Resolved]
  - Pain [Not Recovered/Not Resolved]
  - Feeling hot [Not Recovered/Not Resolved]
  - Feeling hot [Not Recovered/Not Resolved]
  - Local swelling [Not Recovered/Not Resolved]
